FAERS Safety Report 10236258 (Version 1)
Quarter: 2014Q1

REPORT INFORMATION
  Report Type: Spontaneous
  Country: US (occurrence: None)
  Receive Date: 20140306
  Receipt Date: 20140306
  Transmission Date: 20141002
  Serious: Yes (Hospitalization)
  Sender: FDA-Public Use
  Company Number: 163-21880-13102980

PATIENT
  Age: 79 Year
  Sex: Female
  Weight: 66.68 kg

DRUGS (46)
  1. REVLIMID (LENALIDOMIDE) (UNKNOWN) [Suspect]
     Indication: PLASMA CELL MYELOMA
     Dosage: 21 IN 28 D
     Route: 048
     Dates: start: 20130502, end: 20131009
  2. DEXAMETHASONE [Suspect]
     Indication: PLASMA CELL MYELOMA
     Route: 048
     Dates: start: 20130502, end: 20131009
  3. COUMADIN (WARFARIN SODIUM) [Concomitant]
  4. LISINOPRIL [Concomitant]
  5. VERAPAMIL HCL (VERAPAMIL HYDROCHLORIDE) [Concomitant]
  6. METOPROLOL [Concomitant]
  7. CALCIUM PLUS D (OS-CAL) [Concomitant]
  8. LORCET (VICODIN) [Concomitant]
  9. ASPIRIN (ACETYLSALICYLIC ACID) [Concomitant]
  10. BUPROPION HCL (BUPROPION HYDROCHLORIDE) [Concomitant]
  11. VITAMIN B12 (CYANOCOBALAMIN) [Concomitant]
  12. LASIX (FUROSEMIDE) [Concomitant]
  13. OMEPRAZOLE [Concomitant]
  14. POTASSIUM [Concomitant]
  15. PRAVASTATIN [Concomitant]
  16. SERTRALINE [Concomitant]
  17. TEMAZEPAM [Concomitant]
  18. ACETAMINOPHEN (PARACETAMOL) [Concomitant]
  19. ANTI DIARRHEAL (LOPERAMIDE HYDROCHLORIDE) [Concomitant]
  20. CITALOPRAM HYDROBROMIDE [Concomitant]
  21. ERGOCALCIFEROL [Concomitant]
  22. KLOR-CON (POTASSIUM CHLORIDE) [Concomitant]
  23. ONDANSETRON HCL (ONDANSETRON HYDROCHLORIDE) [Concomitant]
  24. SODIUM CHLORIDE [Concomitant]
  25. NITROGLYCERIN  (GLYCERYL TRINITRATE) [Concomitant]
  26. HYDRALAZINE HCL (HYDRALAZINE HYDROCHLORIDE) [Concomitant]
  27. BENZONATATE [Concomitant]
  28. HYDROCODONE/ACETAMINOPHEN (REMEDEINE) [Concomitant]
  29. PHENOL (PHENOL) [Concomitant]
  30. SODIUM BICARBONATE (SODIUM BICARBONATE) [Concomitant]
  31. MAGNESIUM SULFATE [Concomitant]
  32. K-PHOS NEUTRAL (K-PHOS NEUTRAL) [Concomitant]
  33. SODIUM PHOSPHATE [Concomitant]
  34. AMOXICILLIN-POTASSIUM CLAVULANATE [Concomitant]
  35. TUSSIONEX PENNKINETIC (TUSSIONEX PENNKINETIC) [Concomitant]
  36. DILTIAZEM [Concomitant]
  37. LOPERAMIDE HYDROCHLORIDE [Concomitant]
  38. SCOPOLAMINE (HYOSCINE) [Concomitant]
  39. METOCLOPRAMIDE HCL (METOCLOPRAMIDE HYDROCHLORIDE) [Concomitant]
  40. PROCHLORPERAZINE [Concomitant]
  41. AZITHROMYCIN [Concomitant]
  42. LORAZEPAM [Concomitant]
  43. TUMS (CALCIUM CARBONATE) [Concomitant]
  44. CALCIUM GLUCONATE [Concomitant]
  45. ALBUTEROL SULFATE (SALBUTAMOL SULFATE) [Concomitant]
  46. IV FLUID [Concomitant]

REACTIONS (1)
  - Hypotension [None]
